FAERS Safety Report 16740399 (Version 2)
Quarter: 2019Q3

REPORT INFORMATION
  Report Type: Spontaneous
  Country: US (occurrence: US)
  Receive Date: 20190826
  Receipt Date: 20190919
  Transmission Date: 20191005
  Serious: Yes (Other)
  Sender: FDA-Public Use
  Company Number: US-PFIZER INC-2019363311

PATIENT
  Age: 70 Year
  Sex: Female
  Weight: 104.67 kg

DRUGS (1)
  1. GABAPENTIN. [Suspect]
     Active Substance: GABAPENTIN
     Dosage: 600 MG, 2X/DAY
     Route: 048

REACTIONS (2)
  - Polyneuropathy [Unknown]
  - Condition aggravated [Unknown]
